FAERS Safety Report 7964789-7 (Version None)
Quarter: 2011Q4

REPORT INFORMATION
  Report Type: 
  Country: None (occurrence: None)
  Receive Date: 20111208
  Receipt Date: 20111202
  Transmission Date: 20120403
  Serious: Yes (Disabling)
  Sender: FDA-Public Use
  Company Number: GB-AMGEN-GBRSP2011049069

PATIENT
  Age: 60 Year
  Sex: Male
  Weight: 93 kg

DRUGS (15)
  1. AMLODIPINE [Concomitant]
     Indication: HYPERTENSION
     Dosage: 5 MG, 1X/DAY
     Route: 048
     Dates: start: 20070912
  2. DOTHIEPIN HYDROCHLORIDE [Concomitant]
     Indication: DEPRESSED MOOD
  3. SIMVASTATIN [Concomitant]
     Indication: BLOOD CHOLESTEROL INCREASED
     Dosage: 40 MG, AT NIGHT
     Route: 048
     Dates: start: 20070312
  4. ADCAL D3 [Concomitant]
     Indication: BONE DISORDER
     Dosage: 1 DF, 2X/DAY
     Route: 048
     Dates: start: 20110603
  5. OMEPRAZOLE [Concomitant]
     Indication: PROPHYLAXIS
     Dosage: 20 MG, 1X/DAY
     Route: 048
     Dates: start: 20090218
  6. ENBREL [Suspect]
     Indication: RHEUMATOID ARTHRITIS
     Dosage: 50 MG, WEEKLY
     Route: 030
  7. DOTHIEPIN HYDROCHLORIDE [Concomitant]
     Indication: PAIN
     Dosage: 25 MG, AT NIGHT
     Route: 048
     Dates: start: 20100209
  8. BACLOFEN [Concomitant]
     Indication: MUSCLE SPASMS
     Dosage: 10 MG, 3X/DAY
     Route: 048
     Dates: start: 20010718
  9. BENDROFLUMETHIAZIDE [Concomitant]
     Indication: HYPERTENSION
     Dosage: 2.5 MG, 1X/DAY
     Route: 048
     Dates: start: 20010712
  10. MIRTAZAPINE [Concomitant]
     Indication: DEPRESSED MOOD
     Dosage: 30 MG, AT NIGHT
     Route: 048
     Dates: start: 20070821
  11. CITALOPRAM [Concomitant]
     Indication: DEPRESSED MOOD
     Dosage: 20 MG, 1X/DAY
     Route: 048
     Dates: start: 20090508
  12. FOLIC ACID [Concomitant]
     Indication: SUPPLEMENTATION THERAPY
     Dosage: 5 MG, 1X/DAY
     Route: 048
     Dates: start: 20100217
  13. PREDNISOLONE [Concomitant]
     Indication: RHEUMATOID ARTHRITIS
     Dosage: 7.5 MG, 1X/DAY
     Route: 048
     Dates: start: 20070704
  14. NABUMETONE [Concomitant]
     Indication: RHEUMATOID ARTHRITIS
     Dosage: 500 MG, 2X/DAY
     Route: 048
     Dates: start: 20090218
  15. ALBUTEROL SULFATE AUTOHALER [Concomitant]
     Indication: CHRONIC OBSTRUCTIVE PULMONARY DISEASE
     Dosage: 2 PUFFS INHALED AS NEEDED
     Route: 055
     Dates: start: 20110329

REACTIONS (5)
  - NECK PAIN [None]
  - TINNITUS [None]
  - VISION BLURRED [None]
  - MUSCULOSKELETAL STIFFNESS [None]
  - EAR PAIN [None]
